FAERS Safety Report 10656308 (Version 2)
Quarter: 2015Q1

REPORT INFORMATION
  Report Type: Spontaneous
  Country: NO (occurrence: NO)
  Receive Date: 20141216
  Receipt Date: 20150102
  Transmission Date: 20150720
  Serious: Yes (Death)
  Sender: FDA-Public Use
  Company Number: NO-ACTAVIS-2014-26571

PATIENT
  Sex: Male

DRUGS (1)
  1. PARACETAMOL+CODEINE [Suspect]
     Active Substance: ACETAMINOPHEN\CODEINE PHOSPHATE
     Indication: PRODUCT USED FOR UNKNOWN INDICATION
     Dosage: 6 DF, TOTAL
     Route: 048

REACTIONS (3)
  - Drug interaction [Fatal]
  - Respiratory depression [Fatal]
  - Accidental overdose [Fatal]
